FAERS Safety Report 5741196-9 (Version None)
Quarter: 2008Q2

REPORT INFORMATION
  Report Type: 
  Country: None (occurrence: None)
  Receive Date: 20080514
  Receipt Date: 20080502
  Transmission Date: 20081010
  Serious: Yes (Hospitalization)
  Sender: FDA-Public Use
  Company Number: 2008-01537

PATIENT
  Age: 60 Year
  Sex: Male
  Weight: 93.2 kg

DRUGS (6)
  1. VELCADE [Suspect]
     Indication: MANTLE CELL LYMPHOMA
     Dosage: 1.5 MG/M2, INTRAVENOUS
     Route: 042
     Dates: start: 20071229, end: 20080107
  2. RITUXIMAB(RITUXIMAB) INJECTION, 375MG/M2 [Suspect]
     Indication: MANTLE CELL LYMPHOMA
  3. CARMUSTINE(CARMUSTINE) INJECTION, 0.5MG/KG [Suspect]
     Indication: MANTLE CELL LYMPHOMA
  4. ETOPOSIDE [Suspect]
     Indication: MANTLE CELL LYMPHOMA
  5. CYTARABINE [Suspect]
     Indication: MANTLE CELL LYMPHOMA
  6. MELPHALAN(MELPHALAN) VIAL [Suspect]
     Indication: MANTLE CELL LYMPHOMA

REACTIONS (2)
  - GASTRIC ILEUS [None]
  - STEM CELL TRANSPLANT [None]
